FAERS Safety Report 7508566-X (Version None)
Quarter: 2011Q2

REPORT INFORMATION
  Report Type: 
  Country: None (occurrence: None)
  Receive Date: 20110527
  Receipt Date: 20110519
  Transmission Date: 20111010
  Serious: Yes (Other)
  Sender: FDA-Public Use
  Company Number: IL-SANOFI-AVENTIS-2011SA022755

PATIENT
  Age: 78 Year
  Sex: Male

DRUGS (4)
  1. BISOPROLOL FUMARATE [Concomitant]
     Indication: ATRIAL FIBRILLATION
  2. NORMOPRESAN [Concomitant]
  3. VALSARTAN AND HYDROCHLOROTHIAZIDE [Concomitant]
  4. MULTAQ [Suspect]
     Indication: ATRIAL FIBRILLATION
     Route: 048
     Dates: start: 20100929

REACTIONS (3)
  - ATRIAL FIBRILLATION [None]
  - CONDITION AGGRAVATED [None]
  - BRADYCARDIA [None]
